FAERS Safety Report 5148173-X (Version None)
Quarter: 2006Q4

REPORT INFORMATION
  Report Type: 
  Country: None (occurrence: None)
  Receive Date: 20061106
  Receipt Date: 20061023
  Transmission Date: 20070319
  Serious: Yes (Death)
  Sender: FDA-Public Use
  Company Number: 2006BH014278

PATIENT
  Age: 65 Year
  Sex: Male
  Weight: 58.9 kg

DRUGS (8)
  1. EXTRANEAL [Suspect]
     Indication: RENAL FAILURE CHRONIC
     Dosage: 2000 ML;EVERY DAY;IP
     Route: 033
     Dates: start: 20040422, end: 20060227
  2. DIANEAL [Concomitant]
  3. ASPIRIN [Concomitant]
  4. CALTAN              (PRECIPITATED CALCIUM CARBONATE) [Concomitant]
  5. RISUMIC [Concomitant]
  6. LANSOPRAZOLE [Concomitant]
  7. TINELAC [Concomitant]
  8. ALOSENN [Concomitant]

REACTIONS (3)
  - BACILLUS INFECTION [None]
  - GANGRENE [None]
  - SEPSIS [None]
